FAERS Safety Report 9903970 (Version 1)
Quarter: 2014Q1

REPORT INFORMATION
  Report Type: Spontaneous
  Country: US (occurrence: US)
  Receive Date: 20140218
  Receipt Date: 20140218
  Transmission Date: 20141002
  Serious: No
  Sender: FDA-Public Use
  Company Number: US-BIOGENIDEC-2014BI011854

PATIENT
  Age: 64 Year
  Sex: Female

DRUGS (12)
  1. TECFIDERA [Suspect]
     Indication: MULTIPLE SCLEROSIS
     Route: 048
     Dates: start: 201305
  2. TECFIDERA [Suspect]
     Indication: MULTIPLE SCLEROSIS
     Route: 048
     Dates: start: 201306
  3. TRAZADONE HCL [Concomitant]
  4. BACLOFEN [Concomitant]
  5. TRIAMCINOLONE ACETONIDE [Concomitant]
  6. VALTREX [Concomitant]
  7. CITALOPRAM [Concomitant]
  8. ARICEPT [Concomitant]
  9. CELEBREX [Concomitant]
  10. VERAPAMIL HCL ER [Concomitant]
  11. PROBIOTICS [Concomitant]
  12. CELEXA [Concomitant]

REACTIONS (4)
  - Alopecia [Unknown]
  - Diarrhoea [Unknown]
  - Abdominal pain upper [Unknown]
  - Dyspepsia [Unknown]
